FAERS Safety Report 8614372-5 (Version None)
Quarter: 2012Q3

REPORT INFORMATION
  Report Type: 
  Country: None (occurrence: None)
  Receive Date: 20120823
  Receipt Date: 20120815
  Transmission Date: 20120928
  Serious: Yes (Hospitalization)
  Sender: FDA-Public Use
  Company Number: ZA-SANOFI-AVENTIS-2012SA058619

PATIENT
  Age: 42 Year
  Sex: Female

DRUGS (2)
  1. LANTUS [Suspect]
     Route: 058
     Dates: start: 20120127, end: 20120522
  2. SOLOSTAR [Suspect]
     Indication: DEVICE THERAPY
     Dates: start: 20120127

REACTIONS (2)
  - LOCALISED INFECTION [None]
  - TOE AMPUTATION [None]
